FAERS Safety Report 5205703-7 (Version None)
Quarter: 2007Q1

REPORT INFORMATION
  Report Type: 
  Country: None (occurrence: None)
  Receive Date: 20070111
  Receipt Date: 20070102
  Transmission Date: 20070707
  Serious: Yes (Other)
  Sender: FDA-Public Use
  Company Number: CA-NOVOPROD-259097

PATIENT
  Age: 49 Year
  Sex: Female

DRUGS (4)
  1. LEVEMIR [Suspect]
     Indication: DIABETES MELLITUS INSULIN-DEPENDENT
     Dosage: 14 U, QD
     Route: 058
     Dates: start: 20061003, end: 20061204
  2. NOVORAPID [Concomitant]
     Indication: DIABETES MELLITUS INSULIN-DEPENDENT
     Dosage: 17 U, QD
     Route: 058
     Dates: start: 20061003
  3. ASPIRIN [Concomitant]
     Dosage: 80 MG, QD
     Route: 048
     Dates: start: 20050829
  4. LEVOTHYROXINE SODIUM [Concomitant]
     Dosage: .1 MG, QD
     Route: 048
     Dates: start: 20050316

REACTIONS (6)
  - CHEST PAIN [None]
  - INJECTION SITE ERYTHEMA [None]
  - INJECTION SITE INDURATION [None]
  - INJECTION SITE PAIN [None]
  - INJECTION SITE WARMTH [None]
  - PAIN IN EXTREMITY [None]
